FAERS Safety Report 8481845-8 (Version None)
Quarter: 2012Q2

REPORT INFORMATION
  Report Type: 
  Country: None (occurrence: None)
  Receive Date: 20120626
  Receipt Date: 20120626
  Transmission Date: 20120825
  Serious: Yes (Disabling)
  Sender: FDA-Public Use
  Company Number: None

PATIENT
  Age: 58 Year
  Sex: Male
  Weight: 124.7392 kg

DRUGS (1)
  1. NEXAVAR [Suspect]
     Indication: RENAL CELL CARCINOMA
     Dosage: 400MG 2 X A DAY PO
     Route: 048
     Dates: start: 20111109, end: 20120509

REACTIONS (2)
  - COLONIC POLYP [None]
  - PRECANCEROUS CELLS PRESENT [None]
